FAERS Safety Report 24323583 (Version 1)
Quarter: 2024Q3

REPORT INFORMATION
  Report Type: Spontaneous
  Country: US (occurrence: US)
  Receive Date: 20240916
  Receipt Date: 20240916
  Transmission Date: 20241017
  Serious: Yes (Other)
  Sender: PROCTER AND GAMBLE
  Company Number: US-PROCTER_AND_GAMBLE-GS24114979

PATIENT
  Age: 65 Year
  Sex: Female

DRUGS (1)
  1. STANNOUS FLUORIDE [Suspect]
     Active Substance: STANNOUS FLUORIDE
     Dosage: NORMAL SIZE, TWICE
     Route: 002
     Dates: start: 202408

REACTIONS (3)
  - Tooth extraction [Unknown]
  - Expired product administered [Unknown]
  - Product physical consistency issue [Unknown]

NARRATIVE: CASE EVENT DATE: 20240801
